FAERS Safety Report 21286726 (Version 1)
Quarter: 2022Q3

REPORT INFORMATION
  Report Type: Spontaneous
  Country: GR (occurrence: GR)
  Receive Date: 20220902
  Receipt Date: 20220902
  Transmission Date: 20221027
  Serious: Yes (Death)
  Sender: FDA-Public Use
  Company Number: GR-PFIZER INC-PV202200049853

PATIENT
  Age: 64 Year
  Sex: Female

DRUGS (2)
  1. CARBOPLATIN [Suspect]
     Active Substance: CARBOPLATIN
     Indication: Basal cell carcinoma
     Dosage: 4AUC ON DAY:1
  2. PACLITAXEL [Suspect]
     Active Substance: PACLITAXEL
     Indication: Basal cell carcinoma
     Dosage: 40 MG/M2 DAYS:1,8,15 (Q:28 DAYS)

REACTIONS (1)
  - Disease recurrence [Fatal]
